FAERS Safety Report 8289936 (Version 2)
Quarter: 2013Q1

REPORT INFORMATION
  Report Type: Spontaneous
  Country: GB (occurrence: None)
  Receive Date: 20111207
  Receipt Date: 20121219
  Transmission Date: 20140127
  Serious: Yes (Disabling, Other)
  Sender: FDA-Public Use
  Company Number: 2011AP002786

PATIENT
  Age: 79 Year
  Sex: Female

DRUGS (19)
  1. PREDNISOLONE [Concomitant]
  2. QVAR [Concomitant]
  3. RAMIPRIL [Concomitant]
  4. SALBUTAMOL (SALBUTAMOL) [Concomitant]
  5. SODIUM CHLORIDE [Concomitant]
  6. VISCOPASTE (ZINC OXIDE) [Concomitant]
  7. ALENDRONATE SODIUM [Suspect]
     Dates: start: 20111026
  8. ACETYLSALICYLIC ACID (ACETYLSALICYLIC ACID) [Concomitant]
  9. ATORVASTATIN (ATORVASTATIN) [Concomitant]
  10. BISOPROLOL FUMARATE [Concomitant]
  11. ACETAMINOPHEN AND CODEINE [Concomitant]
  12. DOXAZOSIN MESYLATE [Concomitant]
  13. FENTANYL (FENTANYL) [Concomitant]
  14. FUROSEMIDE [Concomitant]
  15. HIBISCRUB (CHLORHEXIDINE GLUCONATE) [Concomitant]
  16. METHOTREXATE [Concomitant]
  17. MORPHINE SULFATE [Concomitant]
  18. NASEPTIN (NASEPTIN) [Concomitant]
  19. OMEPRAZOLE [Concomitant]

REACTIONS (2)
  - OSTEONECROSIS OF JAW [None]
  - OSTEONECROSIS [None]
